FAERS Safety Report 11083833 (Version 2)
Quarter: 2015Q2

REPORT INFORMATION
  Report Type: Spontaneous
  Country: US (occurrence: US)
  Receive Date: 20150501
  Receipt Date: 20150520
  Transmission Date: 20150821
  Serious: Yes (Hospitalization)
  Sender: FDA-Public Use
  Company Number: US-BIOGENIDEC-2015BI054187

PATIENT
  Sex: Female

DRUGS (2)
  1. TECFIDERA [Suspect]
     Active Substance: DIMETHYL FUMARATE
     Indication: MULTIPLE SCLEROSIS
  2. COPAXONE [Concomitant]
     Active Substance: GLATIRAMER ACETATE
     Indication: MULTIPLE SCLEROSIS

REACTIONS (7)
  - Gait disturbance [Unknown]
  - Periorbital contusion [Unknown]
  - Thrombosis [Unknown]
  - Fall [Recovered/Resolved]
  - Flushing [Unknown]
  - Rotator cuff syndrome [Unknown]
  - Pulmonary thrombosis [Unknown]
